FAERS Safety Report 19092928 (Version 1)
Quarter: 2021Q2

REPORT INFORMATION
  Report Type: Report from Study
  Country: CA (occurrence: CA)
  Receive Date: 20210405
  Receipt Date: 20210405
  Transmission Date: 20210717
  Serious: Yes (Death, Hospitalization, Other)
  Sender: FDA-Public Use
  Company Number: CA-JNJFOC-20210107088

PATIENT
  Age: 64 Year
  Sex: Female

DRUGS (12)
  1. OXYGEN. [Concomitant]
     Active Substance: OXYGEN
  2. IMURAN [Concomitant]
     Active Substance: AZATHIOPRINE
  3. LIPITOR [Concomitant]
     Active Substance: ATORVASTATIN CALCIUM
  4. BRICANYL [Concomitant]
     Active Substance: TERBUTALINE SULFATE
  5. PULMICORT TURBUHALER [Concomitant]
     Active Substance: BUDESONIDE
  6. OXYGEN. [Concomitant]
     Active Substance: OXYGEN
  7. LASIX [Concomitant]
     Active Substance: FUROSEMIDE
  8. UPTRAVI [Suspect]
     Active Substance: SELEXIPAG
     Indication: PULMONARY HYPERTENSION
     Route: 048
     Dates: start: 20190325
  9. ADCIRCA [Concomitant]
     Active Substance: TADALAFIL
  10. PREDNISONE. [Concomitant]
     Active Substance: PREDNISONE
  11. ADALAT [Concomitant]
     Active Substance: NIFEDIPINE
  12. TRACLEER [Suspect]
     Active Substance: BOSENTAN
     Indication: PULMONARY HYPERTENSION
     Route: 048
     Dates: start: 20180308

REACTIONS (4)
  - Pulmonary hypertension [Not Recovered/Not Resolved]
  - Hypoxia [Unknown]
  - Hospitalisation [Recovered/Resolved]
  - Death [Fatal]
